FAERS Safety Report 26010734 (Version 2)
Quarter: 2025Q4

REPORT INFORMATION
  Report Type: Spontaneous
  Country: EU (occurrence: EU)
  Receive Date: 20251107
  Receipt Date: 20251223
  Transmission Date: 20260118
  Serious: Yes (Other)
  Sender: RANBAXY
  Company Number: EU-SUN PHARMACEUTICAL INDUSTRIES LTD-2025R1-535334

PATIENT
  Age: 71 Year
  Sex: Female

DRUGS (3)
  1. AMOXICILLIN [Suspect]
     Active Substance: AMOXICILLIN
     Indication: Listeriosis
     Dosage: 2 GRAM, Q4H
     Route: 042
  2. ACYCLOVIR [Suspect]
     Active Substance: ACYCLOVIR
     Indication: Listeriosis
     Dosage: 10 MILLIGRAM/KILOGRAM, TID
     Route: 042
  3. CEFTRIAXONE [Suspect]
     Active Substance: CEFTRIAXONE
     Indication: Listeriosis
     Dosage: 2 GRAM, BID
     Route: 042

REACTIONS (2)
  - Acute kidney injury [Recovered/Resolved]
  - Disease progression [Unknown]
